FAERS Safety Report 12319991 (Version 1)
Quarter: 2016Q2

REPORT INFORMATION
  Report Type: Spontaneous
  Country: US (occurrence: US)
  Receive Date: 20160429
  Receipt Date: 20160429
  Transmission Date: 20160815
  Serious: No
  Sender: FDA-Public Use
  Company Number: US-ROCHE-1676007

PATIENT
  Sex: Female

DRUGS (8)
  1. BACTRIM DS [Concomitant]
     Active Substance: SULFAMETHOXAZOLE\TRIMETHOPRIM
     Indication: ANTIFUNGAL PROPHYLAXIS
     Dosage: ONE TABLET TWICE A DAY ON MONDAY AND THURSDAY
     Route: 065
     Dates: start: 201502
  2. DIFLUCAN [Suspect]
     Active Substance: FLUCONAZOLE
     Indication: FUNGAL INFECTION
     Route: 048
     Dates: start: 201506
  3. PREDNISONE. [Concomitant]
     Active Substance: PREDNISONE
     Dosage: STOPPED EITHER IN END OF /APR/2015 OR 01/MAY/2015.
     Route: 065
     Dates: start: 201502
  4. PREDNISONE. [Concomitant]
     Active Substance: PREDNISONE
     Route: 065
     Dates: start: 201506, end: 201510
  5. DIFLUCAN [Suspect]
     Active Substance: FLUCONAZOLE
     Indication: BONE MARROW TRANSPLANT
  6. PROTONIX [Suspect]
     Active Substance: PANTOPRAZOLE SODIUM
     Indication: GASTROOESOPHAGEAL REFLUX DISEASE
     Route: 048
     Dates: start: 201506
  7. TACROLIMUS. [Concomitant]
     Active Substance: TACROLIMUS
     Route: 065
     Dates: start: 201506
  8. VALCYTE [Suspect]
     Active Substance: VALGANCICLOVIR HYDROCHLORIDE
     Indication: CYTOMEGALOVIRUS INFECTION
     Route: 048
     Dates: start: 201506, end: 201509

REACTIONS (2)
  - Bone disorder [Recovering/Resolving]
  - Fluoride increased [Recovering/Resolving]
